FAERS Safety Report 17488990 (Version 1)
Quarter: 2020Q1

REPORT INFORMATION
  Report Type: Report from Study
  Country: CH (occurrence: CH)
  Receive Date: 20200303
  Receipt Date: 20200303
  Transmission Date: 20200409
  Serious: Yes (Congenital Anomaly)
  Sender: FDA-Public Use
  Company Number: CH-ASTRAZENECA-2020SE27282

PATIENT
  Age: 0 Week

DRUGS (7)
  1. ALPRAZOLAM. [Suspect]
     Active Substance: ALPRAZOLAM
     Route: 064
  2. CYCLOPHOSPHAMIDE. [Suspect]
     Active Substance: CYCLOPHOSPHAMIDE
     Route: 064
  3. PREDNISONE. [Suspect]
     Active Substance: PREDNISONE
     Route: 064
  4. SALMETEROL [Suspect]
     Active Substance: SALMETEROL
     Route: 064
  5. OMEPRAZOLE. [Suspect]
     Active Substance: OMEPRAZOLE
     Route: 064
  6. VALPROATE [Suspect]
     Active Substance: VALPROIC ACID
     Route: 064
  7. LEVOFLOXACIN. [Suspect]
     Active Substance: LEVOFLOXACIN
     Route: 064

REACTIONS (2)
  - Ectrodactyly [Unknown]
  - Syndactyly [Unknown]
